FAERS Safety Report 15497622 (Version 2)
Quarter: 2019Q2

REPORT INFORMATION
  Report Type: Spontaneous
  Country: FR (occurrence: FR)
  Receive Date: 20181015
  Receipt Date: 20190423
  Transmission Date: 20190711
  Serious: Yes (Other)
  Sender: FDA-Public Use
  Company Number: FR-BAUSCH-BL-2018-027154

PATIENT
  Age: 65 Year
  Sex: Male

DRUGS (5)
  1. ALDARA [Suspect]
     Active Substance: IMIQUIMOD
     Indication: ACTINIC KERATOSIS
     Dosage: ONE SACHET A DAY FOR 5 DAYS A WEEK
     Route: 061
     Dates: start: 2011
  2. HYDREA [Interacting]
     Active Substance: HYDROXYUREA
     Indication: MYELOFIBROSIS
  3. ALDARA [Interacting]
     Active Substance: IMIQUIMOD
     Dosage: 12 SACHETS IN A WEEK
     Route: 061
  4. ACETYLSALICYLIC ACID [Concomitant]
     Active Substance: ASPIRIN
     Indication: MYELOFIBROSIS
     Dates: start: 1998
  5. HYDREA [Interacting]
     Active Substance: HYDROXYUREA
     Indication: VASCULITIS
     Route: 048
     Dates: start: 1998

REACTIONS (6)
  - Drug interaction [Unknown]
  - Lymphopenia [Unknown]
  - Product dispensing error [Unknown]
  - Overdose [Unknown]
  - Thrombocytopenia [Unknown]
  - Anaemia [Unknown]
